FAERS Safety Report 12647001 (Version 2)
Quarter: 2017Q3

REPORT INFORMATION
  Report Type: Spontaneous
  Country: US (occurrence: US)
  Receive Date: 20160812
  Receipt Date: 20170809
  Transmission Date: 20171127
  Serious: No
  Sender: FDA-Public Use
  Company Number: US-LUPIN PHARMACEUTICALS INC.-E2B_00005937

PATIENT
  Age: 90 Year
  Sex: Female
  Weight: 81.65 kg

DRUGS (2)
  1. LEVETIRACETAM EXTENDED RELEASE TABLET USP, 500 MG [Suspect]
     Active Substance: LEVETIRACETAM
     Indication: SEIZURE
     Dosage: 500 MG,BID,
     Route: 048
     Dates: start: 2012
  2. COLCRYS [Concomitant]
     Active Substance: COLCHICINE
     Indication: GOUT
     Dosage: UNK UNK,BID,
     Route: 065

REACTIONS (2)
  - Diarrhoea [Recovered/Resolved]
  - Medication residue present [Recovered/Resolved]

NARRATIVE: CASE EVENT DATE: 20160731
